FAERS Safety Report 23743213 (Version 1)
Quarter: 2024Q2

REPORT INFORMATION
  Report Type: Spontaneous
  Country: US (occurrence: US)
  Receive Date: 20240415
  Receipt Date: 20240415
  Transmission Date: 20240716
  Serious: Yes (Other)
  Sender: FDA-Public Use
  Company Number: US-002147023-NVSC2022US304646

PATIENT

DRUGS (1)
  1. PIQRAY [Suspect]
     Active Substance: ALPELISIB
     Indication: Product used for unknown indication
     Dosage: UNK
     Route: 065

REACTIONS (6)
  - Hepatic failure [Unknown]
  - Stevens-Johnson syndrome [Unknown]
  - Hyperglycaemia [Unknown]
  - Diarrhoea [Unknown]
  - Fatigue [Unknown]
  - Electrolyte imbalance [Unknown]
